FAERS Safety Report 6301827-1 (Version None)
Quarter: 2009Q3

REPORT INFORMATION
  Report Type: 
  Country: None (occurrence: None)
  Receive Date: 20090807
  Receipt Date: 20090727
  Transmission Date: 20100115
  Serious: Yes (Hospitalization)
  Sender: FDA-Public Use
  Company Number: JP-ROCHE-634572

PATIENT
  Sex: Female

DRUGS (11)
  1. MYCOPHENOLATE MOFETIL [Suspect]
     Indication: PROPHYLAXIS AGAINST TRANSPLANT REJECTION
     Route: 048
     Dates: start: 20081016, end: 20090514
  2. MYCOPHENOLATE MOFETIL [Suspect]
     Route: 048
     Dates: start: 20090515
  3. PREDONINE [Suspect]
     Indication: PROPHYLAXIS AGAINST TRANSPLANT REJECTION
     Route: 048
     Dates: start: 20090109
  4. NEORAL [Suspect]
     Indication: PROPHYLAXIS AGAINST TRANSPLANT REJECTION
     Route: 048
     Dates: start: 20090312
  5. ZETIA [Concomitant]
     Dates: start: 20081027
  6. MICARDIS [Concomitant]
     Route: 048
     Dates: start: 20081111
  7. WYTENS [Concomitant]
     Route: 048
     Dates: start: 20081118
  8. ARTIST [Concomitant]
     Route: 048
     Dates: start: 20081211
  9. FLUITRAN [Concomitant]
     Dosage: TAKEN AS NEEDED
     Route: 048
     Dates: start: 20090122
  10. LASIX [Concomitant]
     Dosage: NOTE: TAKEN AS NEEDED
     Route: 048
     Dates: start: 20090212
  11. LIPITOR [Concomitant]
     Route: 048
     Dates: start: 20090312

REACTIONS (2)
  - GASTROENTERITIS [None]
  - URINARY TRACT INFECTION [None]
